FAERS Safety Report 7294451-8 (Version None)
Quarter: 2011Q1

REPORT INFORMATION
  Report Type: 
  Country: None (occurrence: None)
  Receive Date: 20110216
  Receipt Date: 20110204
  Transmission Date: 20110831
  Serious: Yes (Hospitalization, Other)
  Sender: FDA-Public Use
  Company Number: BR-AMGEN-BRASP2011007878

PATIENT
  Sex: Female

DRUGS (2)
  1. PURAN T4 [Concomitant]
     Indication: HYPOTHYROIDISM
     Dosage: 50 MG, UNK
     Dates: start: 20010101
  2. ENBREL [Suspect]
     Indication: PSORIATIC ARTHROPATHY
     Dosage: 25 MG, 2X/WEEK
     Route: 058
     Dates: start: 20100101

REACTIONS (5)
  - NASOPHARYNGITIS [None]
  - CONSTIPATION [None]
  - ABDOMINAL PAIN [None]
  - DEPRESSION [None]
  - BLOOD PRESSURE FLUCTUATION [None]
